FAERS Safety Report 5689454-0 (Version None)
Quarter: 2008Q1

REPORT INFORMATION
  Report Type: 
  Country: None (occurrence: None)
  Receive Date: 20080331
  Receipt Date: 20080319
  Transmission Date: 20080703
  Serious: Yes (Other)
  Sender: FDA-Public Use
  Company Number: JP-PFIZER INC-2008025112

PATIENT
  Age: 22 Year
  Sex: Male

DRUGS (7)
  1. GENOTROPIN [Suspect]
     Indication: HYPOPITUITARISM
     Dosage: TEXT:1.1MG WEEKLY
     Route: 058
     Dates: start: 20080128, end: 20080228
  2. GENOTROPIN [Suspect]
     Dosage: TEXT:0.6MG WEEKLY
     Route: 058
  3. CORTRIL [Concomitant]
     Route: 048
  4. THYRADIN S [Concomitant]
     Route: 048
  5. CABERGOLINE [Concomitant]
  6. GONAL-F [Concomitant]
     Route: 058
  7. PROFASI HP [Concomitant]
     Route: 058

REACTIONS (1)
  - HEPATIC FUNCTION ABNORMAL [None]
